FAERS Safety Report 5526189-9 (Version None)
Quarter: 2007Q4

REPORT INFORMATION
  Report Type: 
  Country: None (occurrence: None)
  Receive Date: 20071120
  Receipt Date: 20071108
  Transmission Date: 20080405
  Serious: Yes (Hospitalization, Other)
  Sender: FDA-Public Use
  Company Number: 2007RL000400

PATIENT
  Age: 83 Year
  Sex: Female

DRUGS (12)
  1. RYTHMOL (PROPAFENONEH HYDROCHLORIDE) [Suspect]
     Indication: ARRHYTHMIA
     Dosage: PO
     Route: 048
  2. FLUINDIONE (FLUINDIONE) [Suspect]
     Indication: ATRIAL FIBRILLATION
     Dosage: QD;PO
     Route: 048
     Dates: start: 20070101, end: 20070701
  3. FLUINDIONE (FLUINDIONE) [Suspect]
     Indication: TACHYARRHYTHMIA
     Dosage: QD;PO
     Route: 048
     Dates: start: 20070101, end: 20070701
  4. ACESISTEM /01098101/ [Concomitant]
  5. ALLOPURINOL [Concomitant]
  6. POTASSIUM CHLORIDE [Concomitant]
  7. TRIMETAZIDINE [Concomitant]
  8. ESOMEPRAZOLE [Concomitant]
  9. RILMENIDINE [Concomitant]
  10. NICARDIPINE HYDROCHLORIDE [Concomitant]
  11. LORAZEPAM [Concomitant]
  12. OXZEPAM [Concomitant]

REACTIONS (10)
  - BLOOD PRESSURE INCREASED [None]
  - CONTUSION [None]
  - DIZZINESS [None]
  - DRUG INTERACTION [None]
  - DYSSTASIA [None]
  - FALL [None]
  - INTERNATIONAL NORMALISED RATIO INCREASED [None]
  - INTRACRANIAL HAEMATOMA [None]
  - SUBDURAL HAEMATOMA [None]
  - WOUND [None]
